FAERS Safety Report 6418548-7 (Version None)
Quarter: 2009Q4

REPORT INFORMATION
  Report Type: 
  Country: None (occurrence: None)
  Receive Date: 20091026
  Receipt Date: 20091013
  Transmission Date: 20100525
  Serious: Yes (Other)
  Sender: FDA-Public Use
  Company Number: ADR36592009

PATIENT
  Age: 50 Year
  Sex: Female

DRUGS (9)
  1. SIMVASTATIN [Suspect]
     Indication: ANGINA PECTORIS
     Dosage: 20 MG ORAL
     Route: 048
     Dates: start: 20070723, end: 20070725
  2. SIMVASTATIN [Suspect]
     Indication: BLOOD CHOLESTEROL INCREASED
     Dosage: 20 MG ORAL
     Route: 048
     Dates: start: 20070723, end: 20070725
  3. ASPIRIN [Concomitant]
  4. CO-DYDRAMOL [Concomitant]
  5. IRBESARTAN [Concomitant]
  6. MELOXICAM [Concomitant]
  7. PANTOPRAZOLE [Concomitant]
  8. TILIDEM RETARD [Concomitant]
  9. TRAMADOL HCL [Concomitant]

REACTIONS (2)
  - DYSPNOEA [None]
  - THROAT TIGHTNESS [None]
